FAERS Safety Report 10255978 (Version 1)
Quarter: 2014Q2

REPORT INFORMATION
  Report Type: Spontaneous
  Country: US (occurrence: US)
  Receive Date: 20140624
  Receipt Date: 20140624
  Transmission Date: 20141212
  Serious: Yes (Other)
  Sender: FDA-Public Use
  Company Number: US-PFIZER INC-2014169570

PATIENT
  Age: 29 Year
  Sex: Male
  Weight: 54.42 kg

DRUGS (5)
  1. ZOLOFT [Suspect]
     Indication: ATTENTION DEFICIT/HYPERACTIVITY DISORDER
     Dosage: 25 MG, UNK
     Route: 048
     Dates: start: 2009
  2. ZOLOFT [Suspect]
     Dosage: 50 MG, 2X/DAY
  3. ZOLOFT [Suspect]
     Dosage: UNK
     Route: 048
     Dates: end: 201007
  4. STRATTERA [Suspect]
     Dosage: UNK
  5. MORPHINE SULFATE [Concomitant]
     Dosage: UNK

REACTIONS (17)
  - Pancreatitis [Unknown]
  - Cardiac failure [Unknown]
  - Brain injury [Unknown]
  - Nephrolithiasis [Unknown]
  - Haemorrhage [Unknown]
  - Cerebrovascular accident [Unknown]
  - Malaise [Unknown]
  - Wrong technique in drug usage process [Unknown]
  - Cardiac disorder [Unknown]
  - Limb discomfort [Unknown]
  - Hiatus hernia [Unknown]
  - Renal disorder [Unknown]
  - Dyspnoea [Unknown]
  - Memory impairment [Unknown]
  - Abdominal pain [Unknown]
  - Blood urine present [Unknown]
  - Vomiting [Unknown]
